FAERS Safety Report 7622974-8 (Version None)
Quarter: 2011Q3

REPORT INFORMATION
  Report Type: 
  Country: None (occurrence: None)
  Receive Date: 20110720
  Receipt Date: 20110718
  Transmission Date: 20111222
  Serious: Yes (Hospitalization, Disabling)
  Sender: FDA-Public Use
  Company Number: US-BRISTOL-MYERS SQUIBB COMPANY-15895360

PATIENT
  Age: 77 Year
  Sex: Female

DRUGS (5)
  1. SIMVASTATIN [Concomitant]
  2. PIOGLITAZONE HCL [Concomitant]
  3. GLYBURIDE + METFORMIN HCL [Concomitant]
     Dosage: 1 DF : 5/500MG
  4. TOPROL-XL [Concomitant]
  5. ONGLYZA [Suspect]
     Indication: TYPE 2 DIABETES MELLITUS
     Dosage: MID MAY11
     Dates: start: 20110501

REACTIONS (1)
  - BLINDNESS [None]
